FAERS Safety Report 24928733 (Version 1)
Quarter: 2025Q1

REPORT INFORMATION
  Report Type: Spontaneous
  Country: RO (occurrence: RO)
  Receive Date: 20250205
  Receipt Date: 20250205
  Transmission Date: 20250409
  Serious: Yes (Death, Hospitalization, Other)
  Sender: GLAND PHARMA LTD
  Company Number: RO-GLANDPHARMA-RO-2025GLNLIT00186

PATIENT
  Age: 27 Year
  Sex: Female

DRUGS (9)
  1. DOXORUBICIN HYDROCHLORIDE [Suspect]
     Active Substance: DOXORUBICIN HYDROCHLORIDE
     Indication: Clear cell sarcoma of soft tissue
     Route: 065
  2. COLISTIN [Suspect]
     Active Substance: COLISTIN
     Indication: Acinetobacter infection
     Route: 065
  3. TIGECYCLINE [Suspect]
     Active Substance: TIGECYCLINE
     Indication: Acinetobacter infection
     Route: 065
  4. PAZOPANIB [Suspect]
     Active Substance: PAZOPANIB
     Indication: Clear cell sarcoma of soft tissue
     Route: 065
  5. IFOSFAMIDE [Concomitant]
     Active Substance: IFOSFAMIDE
     Route: 065
  6. MESNA [Concomitant]
     Active Substance: MESNA
     Route: 065
  7. FENTANYL [Concomitant]
     Active Substance: FENTANYL
     Indication: Gait disturbance
     Dosage: 50 MICROGRAM
     Route: 065
  8. MORPHINE SULFATE [Concomitant]
     Active Substance: MORPHINE SULFATE
     Indication: Gait disturbance
     Route: 065
  9. GOSERELIN [Concomitant]
     Active Substance: GOSERELIN
     Indication: Anovulatory cycle
     Route: 065

REACTIONS (1)
  - Posterior reversible encephalopathy syndrome [Fatal]
